FAERS Safety Report 18330330 (Version 3)
Quarter: 2021Q1

REPORT INFORMATION
  Report Type: Spontaneous
  Country: US (occurrence: US)
  Receive Date: 20200930
  Receipt Date: 20210113
  Transmission Date: 20210419
  Serious: Yes (Death, Hospitalization, Other)
  Sender: FDA-Public Use
  Company Number: US-ADVANZ PHARMA-202009008816

PATIENT

DRUGS (10)
  1. CILOSTAZOL. [Concomitant]
     Active Substance: CILOSTAZOL
     Dosage: UNK
  2. TAMSULOSIN [Concomitant]
     Active Substance: TAMSULOSIN
     Dosage: UNK
  3. AMLODIPINE [Concomitant]
     Active Substance: AMLODIPINE BESYLATE
     Dosage: UNK
  4. GOCOVRI [Suspect]
     Active Substance: AMANTADINE
     Dosage: 274 MG, 1X/DAY AT BEDTIME (EXTENDED?RELEASE CAPSULE)
     Route: 048
     Dates: start: 20200804, end: 20200829
  5. GOCOVRI [Suspect]
     Active Substance: AMANTADINE
     Dosage: 274 MG, 1X/DAY AT BEDTIME (EXTENDED?RELEASE CAPSULE)
     Route: 048
     Dates: start: 202009, end: 202009
  6. LORAZEPAM. [Concomitant]
     Active Substance: LORAZEPAM
     Dosage: UNK
  7. METOPROLOL TARTRATE. [Concomitant]
     Active Substance: METOPROLOL TARTRATE
     Dosage: UNK
  8. ALFUZOSIN [Suspect]
     Active Substance: ALFUZOSIN
     Indication: PRODUCT USED FOR UNKNOWN INDICATION
     Dosage: UNK
     Route: 065
     Dates: start: 2020, end: 2020
  9. GOCOVRI [Suspect]
     Active Substance: AMANTADINE
     Indication: DYSKINESIA
     Dosage: 137 MG, 1X/DAY AT BEDTIME (EXTENDED?RELEASE CAPSULE)
     Route: 048
     Dates: start: 20200728, end: 20200803
  10. SINEMET [Suspect]
     Active Substance: CARBIDOPA\LEVODOPA
     Dosage: UNK, TID
     Dates: end: 202009

REACTIONS (16)
  - Delirium [Unknown]
  - Abnormal dreams [Recovered/Resolved]
  - Asthenia [Not Recovered/Not Resolved]
  - Hypertension [Unknown]
  - Hypovolaemia [Unknown]
  - Urinary retention [Unknown]
  - Dysuria [Unknown]
  - Fall [Recovered/Resolved]
  - Product dose omission issue [Unknown]
  - Death [Fatal]
  - Parkinson^s disease [Unknown]
  - Hospice care [Unknown]
  - Respiratory failure [Unknown]
  - Balance disorder [Unknown]
  - Hallucination, auditory [Unknown]
  - Acute kidney injury [Unknown]

NARRATIVE: CASE EVENT DATE: 2020
